FAERS Safety Report 6300140-6 (Version None)
Quarter: 2009Q3

REPORT INFORMATION
  Report Type: 
  Country: None (occurrence: None)
  Receive Date: 20090806
  Receipt Date: 20090731
  Transmission Date: 20100115
  Serious: Yes (Other)
  Sender: FDA-Public Use
  Company Number: GB-AMGEN-QUU352248

PATIENT
  Sex: Male

DRUGS (9)
  1. ARANESP [Suspect]
     Indication: RENAL FAILURE CHRONIC
     Route: 058
     Dates: start: 20081101, end: 20090501
  2. DOXAZOSIN MESYLATE [Concomitant]
     Route: 048
     Dates: start: 20070802
  3. MYCOPHENOLATE MOFETIL [Concomitant]
     Route: 048
     Dates: start: 20070523
  4. ALFACALCIDOL [Concomitant]
     Route: 048
     Dates: start: 20050930
  5. PREDNISOLONE [Concomitant]
     Route: 048
     Dates: start: 20021031
  6. SIMVASTATIN [Concomitant]
     Route: 048
     Dates: start: 20000622
  7. VALPROATE SODIUM [Concomitant]
     Route: 048
     Dates: start: 20000430
  8. PARACETAMOL [Concomitant]
     Route: 048
     Dates: start: 20001123
  9. CALCICHEW [Concomitant]
     Route: 048
     Dates: start: 20070420

REACTIONS (6)
  - DIARRHOEA [None]
  - HAEMOGLOBIN DECREASED [None]
  - NAUSEA [None]
  - URINARY TRACT INFECTION [None]
  - VOMITING [None]
  - WEIGHT DECREASED [None]
